FAERS Safety Report 8044313-3 (Version None)
Quarter: 2012Q1

REPORT INFORMATION
  Report Type: 
  Country: None (occurrence: None)
  Receive Date: 20120113
  Receipt Date: 20120110
  Transmission Date: 20120608
  Serious: Yes (Other)
  Sender: FDA-Public Use
  Company Number: US-SANOFI-AVENTIS-2011SA077861

PATIENT
  Age: 57 Year
  Sex: Female
  Weight: 148 kg

DRUGS (9)
  1. ATENOLOL [Concomitant]
     Indication: BLOOD PRESSURE
  2. HYDROCHLOROTHIAZIDE [Concomitant]
     Indication: BLOOD PRESSURE
  3. HYDROCHLOROTHIAZIDE [Concomitant]
  4. IPRATROPIUM BROMIDE/SALBUTAMOL SULFATE [Concomitant]
     Dosage: 2 PUFFS
  5. ATENOLOL [Concomitant]
  6. SYNTHROID [Concomitant]
     Indication: THYROID DISORDER
  7. BENAZEPRIL HYDROCHLORIDE [Concomitant]
     Indication: BLOOD PRESSURE
  8. SOLOSTAR [Suspect]
     Dates: start: 20100101
  9. LANTUS [Suspect]
     Dosage: DOSE:18 UNIT(S)
     Route: 058
     Dates: start: 20090101

REACTIONS (1)
  - PNEUMONIA [None]
